FAERS Safety Report 18118923 (Version 6)
Quarter: 2020Q4

REPORT INFORMATION
  Report Type: Spontaneous
  Country: US (occurrence: US)
  Receive Date: 20200806
  Receipt Date: 20201216
  Transmission Date: 20210113
  Serious: Yes (Other)
  Sender: FDA-Public Use
  Company Number: US-PFIZER INC-2020296610

PATIENT
  Age: 70 Year
  Sex: Female

DRUGS (2)
  1. IBRANCE [Suspect]
     Active Substance: PALBOCICLIB
     Indication: NIPPLE NEOPLASM
     Dosage: 125 MG, CYCLIC (ONCE DAILY X 21 DAYS EVERY 28 DAYS)
     Route: 048
     Dates: start: 20200610, end: 2020
  2. IBRANCE [Suspect]
     Active Substance: PALBOCICLIB
     Dosage: 125 MG, CYCLIC (ONCE DAILY X 21 DAYS EVERY 28 DAYS)
     Route: 048
     Dates: start: 20200708

REACTIONS (10)
  - Choking [Unknown]
  - Pharyngeal swelling [Unknown]
  - Pain in extremity [Unknown]
  - Peripheral swelling [Not Recovered/Not Resolved]
  - Product dose omission issue [Unknown]
  - Ear infection [Unknown]
  - Sinusitis [Unknown]
  - Alopecia [Not Recovered/Not Resolved]
  - Herpes zoster [Unknown]
  - Peripheral swelling [Not Recovered/Not Resolved]

NARRATIVE: CASE EVENT DATE: 2020
